FAERS Safety Report 12365083 (Version 1)
Quarter: 2016Q2

REPORT INFORMATION
  Report Type: Spontaneous
  Country: US (occurrence: None)
  Receive Date: 20160512
  Receipt Date: 20160512
  Transmission Date: 20160815
  Serious: Yes (Hospitalization)
  Sender: FDA-Public Use
  Company Number: None

PATIENT
  Age: 68 Year
  Sex: Male
  Weight: 97.52 kg

DRUGS (22)
  1. FISH OIL [Concomitant]
     Active Substance: FISH OIL
  2. JARDIANCE [Concomitant]
     Active Substance: EMPAGLIFLOZIN
  3. CYPROHEPTDINE [Concomitant]
  4. VIT-D [Concomitant]
  5. VIT-B [Concomitant]
  6. LISINOPRIL. [Concomitant]
     Active Substance: LISINOPRIL
  7. LEVOTHYROXIN [Concomitant]
     Active Substance: LEVOTHYROXINE
  8. MULTI VIT [Concomitant]
  9. HYDROXYZINE [Concomitant]
     Active Substance: HYDROXYZINE\HYDROXYZINE HYDROCHLORIDE
  10. ZETITA [Concomitant]
  11. CIALIS [Suspect]
     Active Substance: TADALAFIL
  12. VICTOZA [Concomitant]
     Active Substance: LIRAGLUTIDE
  13. NOVALOG [Concomitant]
  14. TAMSULOSIN [Concomitant]
     Active Substance: TAMSULOSIN
  15. HYDROCHLOROTHIAZIDE. [Concomitant]
     Active Substance: HYDROCHLOROTHIAZIDE
  16. LEVEMIR [Concomitant]
     Active Substance: INSULIN DETEMIR
  17. SYMBYCORT [Concomitant]
  18. LATANOPROST. [Concomitant]
     Active Substance: LATANOPROST
  19. PROAIR HFA [Concomitant]
     Active Substance: ALBUTEROL SULFATE
  20. VIAGRA [Suspect]
     Active Substance: SILDENAFIL CITRATE
     Indication: ERECTILE DYSFUNCTION
     Dosage: 100 TABLET(S) AS NEEDED TAKEN BY MOUTH
     Route: 048
  21. AMBIEN [Concomitant]
     Active Substance: ZOLPIDEM TARTRATE
  22. GABAPENTIN. [Concomitant]
     Active Substance: GABAPENTIN

REACTIONS (5)
  - Blood pressure decreased [None]
  - Glaucoma [None]
  - Malaise [None]
  - Asthma [None]
  - Visual impairment [None]

NARRATIVE: CASE EVENT DATE: 20150327
